FAERS Safety Report 10164063 (Version 1)
Quarter: 2014Q2

REPORT INFORMATION
  Report Type: Spontaneous
  Country: US (occurrence: US)
  Receive Date: 20140510
  Receipt Date: 20140510
  Transmission Date: 20141212
  Serious: No
  Sender: FDA-Public Use
  Company Number: US-BRISTOL-MYERS SQUIBB COMPANY-19886068

PATIENT
  Sex: Female

DRUGS (2)
  1. BYDUREON [Suspect]
     Dates: start: 20130903, end: 201310
  2. BYETTA [Suspect]

REACTIONS (1)
  - Injection site nodule [Not Recovered/Not Resolved]
